FAERS Safety Report 11913221 (Version 1)
Quarter: 2016Q1

REPORT INFORMATION
  Report Type: Spontaneous
  Country: US (occurrence: None)
  Receive Date: 20160112
  Receipt Date: 20160112
  Transmission Date: 20160526
  Serious: Yes (Disabling)
  Sender: FDA-Public Use
  Company Number: None

PATIENT
  Age: 48 Year
  Sex: Female
  Weight: 53.98 kg

DRUGS (12)
  1. VITAMIN E [Concomitant]
     Active Substance: .ALPHA.-TOCOPHEROL
  2. SERRAPEPTASE [Concomitant]
     Active Substance: SERRAPEPTASE
  3. COENZYME Q10 [Concomitant]
     Active Substance: UBIDECARENONE
  4. ZINC [Concomitant]
     Active Substance: ZINC\ZINC CHLORIDE
  5. CLINDAMYCIN [Concomitant]
     Active Substance: CLINDAMYCIN\CLINDAMYCIN PHOSPHATE
  6. IMMUNE SUPPORT [Concomitant]
  7. PROBIOTIC [Concomitant]
     Active Substance: PROBIOTICS NOS
  8. EMERGEN-C [Concomitant]
     Active Substance: VITAMINS
  9. VIT A [Concomitant]
  10. L-GLUTAMINE [Concomitant]
  11. CLINDAMYCIN [Suspect]
     Active Substance: CLINDAMYCIN\CLINDAMYCIN PHOSPHATE
     Indication: ORAL BACTERIAL INFECTION
     Dosage: 1 PILL
     Route: 048
  12. DIGESTIVE ENZYMES [Concomitant]
     Active Substance: UNSPECIFIED INGREDIENT

REACTIONS (5)
  - Diarrhoea [None]
  - Inappropriate schedule of drug administration [None]
  - Clostridium difficile infection [None]
  - Gastrointestinal disorder [None]
  - Abdominal pain [None]

NARRATIVE: CASE EVENT DATE: 20151211
